FAERS Safety Report 4388872-0 (Version None)
Quarter: 2004Q2

REPORT INFORMATION
  Report Type: 
  Country: None (occurrence: None)
  Receive Date: 20040624
  Receipt Date: 20040614
  Transmission Date: 20050107
  Serious: Yes (Hospitalization, Other)
  Sender: FDA-Public Use
  Company Number: HQWYE446314JUN04

PATIENT
  Age: 68 Year
  Sex: Male

DRUGS (7)
  1. PANTOPRAZOLE SODIUM [Suspect]
     Indication: ANASTOMOTIC ULCER
     Dosage: 40 MG 1X PER 1 DAY
     Route: 048
  2. COAPROVEL (IRBESARTAN/HYDROCHLOROTHIAZIDE, ) [Suspect]
     Indication: ESSENTIAL HYPERTENSION
     Dosage: ONE TIME PER DAY
     Route: 048
  3. FRAXODI (NADROPARIN CALCIUM, ) [Suspect]
     Indication: PHLEBITIS
     Dosage: ONE TIME PER DAY; SC
     Route: 058
     Dates: start: 20030305, end: 20030305
  4. FRAXODI (NADROPARIN CALCIUM, ) [Suspect]
     Indication: THROMBOPHLEBITIS
     Dosage: ONE TIME PER DAY; SC
     Route: 058
     Dates: start: 20030305, end: 20030305
  5. ASPIRIN [Suspect]
     Dosage: ONE TIME PER DAY
     Route: 048
     Dates: end: 20030305
  6. PROPOXYPHENE HCL [Concomitant]
  7. TADENAN (PYGEUM AFRICANUM) [Concomitant]

REACTIONS (4)
  - DRUG INTERACTION [None]
  - HAEMATEMESIS [None]
  - HEART RATE INCREASED [None]
  - PALLOR [None]
